FAERS Safety Report 25376098 (Version 1)
Quarter: 2025Q2

REPORT INFORMATION
  Report Type: Spontaneous
  Country: US (occurrence: US)
  Receive Date: 20250529
  Receipt Date: 20250529
  Transmission Date: 20250717
  Serious: No
  Sender: INCYTE
  Company Number: US-EVENT-002836

PATIENT
  Age: 42 Year

DRUGS (1)
  1. OPZELURA [Suspect]
     Active Substance: RUXOLITINIB PHOSPHATE
     Indication: Product used for unknown indication
     Dosage: 1.5 PERCENT, BID,APPLY A THIN LAYER TO AFFECTED AREA(S) ON HAND AND UNDER EYE  AS DIRECTED.
     Route: 065

REACTIONS (2)
  - Rash macular [Not Recovered/Not Resolved]
  - Off label use [Unknown]
